FAERS Safety Report 10955648 (Version 1)
Quarter: 2015Q1

REPORT INFORMATION
  Report Type: Spontaneous
  Country: KR (occurrence: KR)
  Receive Date: 20150326
  Receipt Date: 20150326
  Transmission Date: 20150721
  Serious: Yes (Life-Threatening, Hospitalization)
  Sender: FDA-Public Use
  Company Number: KR-JNJFOC-20150309954

PATIENT
  Age: 53 Year
  Sex: Female

DRUGS (1)
  1. FENTANYL. [Suspect]
     Active Substance: FENTANYL
     Indication: PAIN
     Route: 062

REACTIONS (14)
  - Hypoxia [Recovered/Resolved]
  - Drug diversion [Unknown]
  - Obsessive thoughts [Unknown]
  - Abnormal behaviour [Recovered/Resolved]
  - Impatience [Unknown]
  - Overdose [Unknown]
  - Depressed level of consciousness [Recovered/Resolved]
  - Hallucination, auditory [Recovered/Resolved]
  - Hallucination, visual [Recovered/Resolved]
  - Anxiety [Recovered/Resolved]
  - Toxicity to various agents [Recovered/Resolved]
  - Persecutory delusion [Recovered/Resolved]
  - Leukoencephalopathy [Unknown]
  - Respiratory failure [Unknown]
